FAERS Safety Report 14350835 (Version 3)
Quarter: 2018Q2

REPORT INFORMATION
  Report Type: Spontaneous
  Country: AT (occurrence: AT)
  Receive Date: 20180104
  Receipt Date: 20180409
  Transmission Date: 20180711
  Serious: Yes (Other)
  Sender: FDA-Public Use
  Company Number: AT-OTSUKA-2017_028348

PATIENT
  Age: 60 Year
  Sex: Male

DRUGS (20)
  1. GEROLAMIC [Concomitant]
     Indication: PRODUCT USED FOR UNKNOWN INDICATION
     Dosage: 25 MG, UNK
     Route: 048
     Dates: start: 20170622, end: 20170630
  2. LITHIUM. [Concomitant]
     Active Substance: LITHIUM
     Dosage: UNK
     Route: 065
  3. EFECTIN [Suspect]
     Active Substance: VENLAFAXINE HYDROCHLORIDE
     Indication: PRODUCT USED FOR UNKNOWN INDICATION
     Dosage: 225 MG, UNK
     Route: 048
     Dates: start: 20170705, end: 20170719
  4. EFECTIN [Suspect]
     Active Substance: VENLAFAXINE HYDROCHLORIDE
     Dosage: 75 MG, UNK
     Route: 048
     Dates: start: 20170622, end: 20170626
  5. EFECTIN [Suspect]
     Active Substance: VENLAFAXINE HYDROCHLORIDE
     Dosage: 150 MG, UNK
     Route: 048
     Dates: start: 20170627, end: 20170704
  6. GEROLAMIC [Concomitant]
     Dosage: UNK
     Route: 048
     Dates: start: 20170717, end: 20170727
  7. LITHIUM. [Concomitant]
     Active Substance: LITHIUM
     Indication: PRODUCT USED FOR UNKNOWN INDICATION
     Dosage: 75 MG, QD
     Route: 065
  8. GEROLAMIC [Concomitant]
     Dosage: UNK
     Route: 048
     Dates: start: 20170701, end: 20170709
  9. GEROLAMIC [Concomitant]
     Dosage: 150 MG, UNK
     Route: 048
     Dates: start: 20170728
  10. TEMESTA (LORAZEPAM) [Concomitant]
     Active Substance: LORAZEPAM
     Indication: AGITATION
     Dosage: 7.5 MG, QD
     Route: 065
  11. CONVULEX [Concomitant]
     Active Substance: VALPROIC ACID
     Dosage: UNK
     Route: 065
  12. LITHIUM. [Concomitant]
     Active Substance: LITHIUM
     Dosage: 675 MG, QD
     Route: 065
  13. ABILIFY [Suspect]
     Active Substance: ARIPIPRAZOLE
     Dosage: 20 MG, UNK
     Route: 048
     Dates: start: 20170720
  14. CONVULEX [Concomitant]
     Active Substance: VALPROIC ACID
     Indication: PRODUCT USED FOR UNKNOWN INDICATION
     Dosage: 1500 MG, QD
     Route: 065
  15. ABILIFY [Suspect]
     Active Substance: ARIPIPRAZOLE
     Indication: PRODUCT USED FOR UNKNOWN INDICATION
     Dosage: 10 MG, UNK
     Route: 048
     Dates: start: 20170620, end: 20170719
  16. GEROLAMIC [Concomitant]
     Dosage: UNK
     Route: 048
     Dates: start: 20170710, end: 20170716
  17. TEMESTA (LORAZEPAM) [Concomitant]
     Active Substance: LORAZEPAM
     Dosage: 5 MG, UNK
     Route: 065
  18. TEMESTA (LORAZEPAM) [Concomitant]
     Active Substance: LORAZEPAM
     Dosage: UNK
     Route: 065
  19. ADASUVE [Concomitant]
     Active Substance: LOXAPINE
     Indication: AGITATION
     Dosage: UNK
     Route: 055
  20. WELLBUTRIN [Concomitant]
     Active Substance: BUPROPION HYDROCHLORIDE
     Indication: PRODUCT USED FOR UNKNOWN INDICATION
     Dosage: 150 MG, UNK
     Route: 065
     Dates: start: 20170706, end: 20170713

REACTIONS (8)
  - Flight of ideas [Unknown]
  - Cognitive disorder [Unknown]
  - Hypomania [Recovered/Resolved]
  - Psychomotor hyperactivity [Unknown]
  - Impulsive behaviour [Unknown]
  - Mania [Recovered/Resolved]
  - Dysphoria [Unknown]
  - Delusion [Unknown]

NARRATIVE: CASE EVENT DATE: 20170718
